FAERS Safety Report 7397627-4 (Version None)
Quarter: 2011Q2

REPORT INFORMATION
  Report Type: 
  Country: None (occurrence: None)
  Receive Date: 20110406
  Receipt Date: 20110329
  Transmission Date: 20111010
  Serious: Yes (Other)
  Sender: FDA-Public Use
  Company Number: JP-PFIZER INC-2011067592

PATIENT
  Age: 53 Year
  Sex: Male
  Weight: 53 kg

DRUGS (17)
  1. TEMSIROLIMUS [Suspect]
     Dosage: 25 MG, WEEKLY
     Dates: start: 20110203
  2. TEMSIROLIMUS [Suspect]
     Dosage: 25 MG, WEEKLY
     Dates: start: 20110210
  3. PREDONINE [Concomitant]
     Dosage: 5 MG, 1X/DAY
     Route: 048
     Dates: start: 20100423
  4. CALCIUM CARBONATE [Concomitant]
     Dosage: 500 MG, 3X/DAY
     Route: 048
     Dates: start: 20110117
  5. ATARAX [Concomitant]
     Dosage: 10 MG, 1X/DAY
     Route: 048
     Dates: start: 20100423
  6. TEMSIROLIMUS [Suspect]
     Indication: RENAL CELL CARCINOMA
     Dosage: 25 MG, WEEKLY
     Route: 041
     Dates: start: 20110120
  7. NOVAMIN [Concomitant]
     Dosage: 5 MG, 3X/DAY
     Route: 048
     Dates: start: 20101210
  8. PANTOSIN [Concomitant]
     Dosage: 30 MG, 3X/DAY
     Route: 048
     Dates: start: 20101210
  9. MAGNESIUM OXIDE [Concomitant]
     Dosage: 330 MG, 3X/DAY
     Route: 048
     Dates: start: 20101210
  10. TEMSIROLIMUS [Suspect]
     Dosage: 25 MG, WEEKLY
     Dates: start: 20110127
  11. RESTAMIN [Concomitant]
     Indication: PROPHYLAXIS
     Dosage: 50 MG, 1X/DAY
     Route: 048
  12. TAKEPRON [Concomitant]
     Indication: PROPHYLAXIS
     Dosage: 15 MG, 1X/DAY
     Route: 048
     Dates: start: 20100423
  13. OXYCONTIN [Concomitant]
     Dosage: 7.5 MG, 2X/DAY
     Route: 048
     Dates: start: 20101210
  14. ALEVIATIN [Concomitant]
     Dosage: 100 MG, 3X/DAY
     Route: 048
     Dates: start: 20100423
  15. LOXONIN [Concomitant]
     Dosage: 60 MG, 3X/DAY
     Route: 048
     Dates: start: 20101210
  16. DASEN [Concomitant]
     Dosage: 5 MG, 3X/DAY
     Route: 048
     Dates: start: 20110118, end: 20110123
  17. ALLELOCK [Concomitant]
     Dosage: 5 MG, 2X/DAY
     Route: 048
     Dates: start: 20100423

REACTIONS (1)
  - CONVULSION [None]
